FAERS Safety Report 15777719 (Version 1)
Quarter: 2018Q4

REPORT INFORMATION
  Report Type: Spontaneous
  Country: US (occurrence: US)
  Receive Date: 20181231
  Receipt Date: 20181231
  Transmission Date: 20190205
  Serious: Yes (Other)
  Sender: FDA-Public Use
  Company Number: None

PATIENT
  Age: 32 Year
  Sex: Male
  Weight: 94.5 kg

DRUGS (6)
  1. ADDERALL [Concomitant]
     Active Substance: AMPHETAMINE ASPARTATE\AMPHETAMINE SULFATE\DEXTROAMPHETAMINE SACCHARATE\DEXTROAMPHETAMINE SULFATE
  2. ZOLPIDEM (GENERIC AMBIEN) [Suspect]
     Active Substance: ZOLPIDEM TARTRATE
     Indication: INSOMNIA
     Dosage: ?          QUANTITY:1 TABLET(S);?
     Route: 048
     Dates: end: 20180629
  3. ESCITALOPRAM [Concomitant]
     Active Substance: ESCITALOPRAM OXALATE
  4. BUPROPION HCL [Concomitant]
     Active Substance: BUPROPION HYDROCHLORIDE
  5. CLONAZEPAM. [Concomitant]
     Active Substance: CLONAZEPAM
  6. ABILIFY [Concomitant]
     Active Substance: ARIPIPRAZOLE

REACTIONS (5)
  - Extra dose administered [None]
  - Road traffic accident [None]
  - Incorrect dose administered [None]
  - Stupor [None]
  - Amnesia [None]

NARRATIVE: CASE EVENT DATE: 20180629
